FAERS Safety Report 5626443-6 (Version None)
Quarter: 2008Q1

REPORT INFORMATION
  Report Type: 
  Country: None (occurrence: None)
  Receive Date: 20080214
  Receipt Date: 20080211
  Transmission Date: 20080703
  Serious: Yes (Death, Other)
  Sender: FDA-Public Use
  Company Number: GB-BRISTOL-MYERS SQUIBB COMPANY-14000822

PATIENT
  Age: 37 Year
  Sex: Male

DRUGS (1)
  1. SPRYCEL [Suspect]

REACTIONS (6)
  - CONJUNCTIVAL HAEMORRHAGE [None]
  - CONTUSION [None]
  - MALIGNANT NEOPLASM PROGRESSION [None]
  - RETINAL HAEMORRHAGE [None]
  - THROMBOCYTOPENIA [None]
  - WHITE BLOOD CELL COUNT INCREASED [None]
